FAERS Safety Report 8163129-0 (Version None)
Quarter: 2012Q1

REPORT INFORMATION
  Report Type: 
  Country: None (occurrence: None)
  Receive Date: 20120224
  Receipt Date: 20120217
  Transmission Date: 20120608
  Serious: Yes (Hospitalization)
  Sender: FDA-Public Use
  Company Number: DE-UCBSA-050283

PATIENT
  Age: 74 Year
  Sex: Female
  Weight: 65 kg

DRUGS (4)
  1. METOPROLOL TARTRATE [Suspect]
     Dosage: 50 STADA, 20 TABLETS ATMOST
     Route: 048
  2. ALCOHOL [Suspect]
     Dosage: UNKNOWN QUANTITY
     Route: 048
  3. BROMAZANIL 6 [Suspect]
     Dosage: 10 TABL. AT MOST
     Route: 048
  4. KEPPRA [Suspect]
     Dosage: 1000 MG CTD, 20 TABLETS ATMOST
     Route: 048

REACTIONS (8)
  - SOPOR [None]
  - TACHYCARDIA [None]
  - ALCOHOL POISONING [None]
  - SUICIDE ATTEMPT [None]
  - ADENOMYOSIS [None]
  - BLOOD PRESSURE SYSTOLIC DECREASED [None]
  - SOMNOLENCE [None]
  - BLOOD CREATININE INCREASED [None]
